FAERS Safety Report 24653371 (Version 1)
Quarter: 2024Q4

REPORT INFORMATION
  Report Type: Report from Study
  Country: GB (occurrence: GB)
  Receive Date: 20241122
  Receipt Date: 20241122
  Transmission Date: 20250114
  Serious: Yes (Hospitalization, Other)
  Sender: BAXTER
  Company Number: GB-BAXTER-2024BAX028024

PATIENT
  Age: 77 Year
  Sex: Male

DRUGS (12)
  1. WATER FOR INJECTION [Suspect]
     Active Substance: WATER
     Indication: Parenteral nutrition
     Dosage: [R], 2000 MLS FOR 6 TIMES PER WEEK
     Route: 065
  2. DEXTROSE [Suspect]
     Active Substance: DEXTROSE MONOHYDRATE
     Indication: Parenteral nutrition
     Dosage: (GLUCOSE 50% BP) 2000 MLS FOR 6 TIMES PER WEEK
     Route: 065
  3. SYNTHAMIN [Suspect]
     Active Substance: AMINO ACIDS
     Indication: Parenteral nutrition
     Dosage: (SYNTHAMIN 17 EF) 2000 MLS FOR 6 TIMES PER WEEK
     Route: 065
  4. CERNEVIT [Suspect]
     Active Substance: VITAMINS
     Indication: Parenteral nutrition
     Dosage: 2000 MLS FOR 6 TIMES PER WEEK
     Route: 065
  5. IRON\MINERALS\POTASSIUM IOD\SODIUM FLUORIDE\SODIUM MOLYBDATE\SODIUM SE [Suspect]
     Active Substance: IRON\MINERALS\POTASSIUM IOD\SODIUM FLUORIDE\SODIUM MOLYBDATE\SODIUM SELENITE\ZINC
     Indication: Parenteral nutrition
     Dosage: 2000 MLS FOR 6 TIMES PER WEEK
     Route: 065
  6. POTASSIUM ACETATE [Suspect]
     Active Substance: POTASSIUM ACETATE
     Indication: Parenteral nutrition
     Dosage: [A], 2000 MLS FOR 6 TIMES PER WEEK
     Route: 065
  7. SODIUM ACETATE [Suspect]
     Active Substance: SODIUM ACETATE
     Indication: Parenteral nutrition
     Dosage: [A], 2000 MLS FOR 6 TIMES PER WEEK
     Route: 065
  8. WATER FOR INJECTION [Suspect]
     Active Substance: WATER
     Indication: Parenteral nutrition
     Dosage: (WATER FOR TPN FORMULATIONS) 2000 MLS FOR 6 TIMES PER WEEK
     Route: 065
  9. SODIUM CHLORIDE [Suspect]
     Active Substance: SODIUM CHLORIDE
     Indication: Parenteral nutrition
     Dosage: 2000 MLS FOR 6 TIMES PER WEEK
     Route: 065
  10. SODIUM GLYCEROPHOSPHATE [Suspect]
     Active Substance: SODIUM GLYCEROPHOSPHATE
     Indication: Parenteral nutrition
     Dosage: 2000 MLS FOR 6 TIMES PER WEEK
     Route: 065
  11. MAGNESIUM SULFATE [Suspect]
     Active Substance: MAGNESIUM SULFATE
     Indication: Parenteral nutrition
     Dosage: (BAG) 2000 MLS FOR 6 TIMES PER WEEK
     Route: 065
  12. UNSPECIFIED INGREDIENT [Suspect]
     Active Substance: UNSPECIFIED INGREDIENT
     Route: 065

REACTIONS (1)
  - Gastrointestinal anastomotic leak [Unknown]

NARRATIVE: CASE EVENT DATE: 20241115
